FAERS Safety Report 10515168 (Version 3)
Quarter: 2015Q2

REPORT INFORMATION
  Report Type: Report from Study
  Country: DE (occurrence: DE)
  Receive Date: 20141014
  Receipt Date: 20150620
  Transmission Date: 20150821
  Serious: Yes (Hospitalization, Other)
  Sender: FDA-Public Use
  Company Number: PHHY2014DE133159

PATIENT
  Age: 43 Year
  Sex: Female
  Weight: 67 kg

DRUGS (2)
  1. FAMPYRA [Concomitant]
     Active Substance: DALFAMPRIDINE
     Indication: MUSCLE SPASTICITY
     Dosage: 10 MG, BID
     Route: 048
     Dates: start: 20130411
  2. GILENYA [Suspect]
     Active Substance: FINGOLIMOD HYDROCHLORIDE
     Indication: MULTIPLE SCLEROSIS
     Dosage: 0.5 MG, QD
     Route: 048
     Dates: start: 20131212, end: 20140803

REACTIONS (2)
  - Breast cancer stage II [Not Recovered/Not Resolved]
  - Multiple sclerosis relapse [Recovered/Resolved]

NARRATIVE: CASE EVENT DATE: 20140710
